FAERS Safety Report 11254771 (Version 1)
Quarter: 2015Q3

REPORT INFORMATION
  Report Type: Report from Study
  Country: NL (occurrence: NL)
  Receive Date: 20150709
  Receipt Date: 20150709
  Transmission Date: 20151125
  Serious: Yes (Other)
  Sender: FDA-Public Use
  Company Number: NL-ABBVIE-15P-114-1421284-00

PATIENT
  Age: 46 Year
  Sex: Female
  Weight: 51 kg

DRUGS (2)
  1. LUCRIN DEPOT [Suspect]
     Active Substance: LEUPROLIDE ACETATE
     Indication: LEIOMYOMA
     Route: 058
     Dates: start: 20141020, end: 20150703
  2. VITAMINE D VOOR SENIOREN [Concomitant]
     Indication: VITAMIN D DEFICIENCY
     Route: 048
     Dates: start: 2010

REACTIONS (3)
  - Musculoskeletal chest pain [Unknown]
  - Hepatic steatosis [Not Recovered/Not Resolved]
  - Liver function test abnormal [Not Recovered/Not Resolved]

NARRATIVE: CASE EVENT DATE: 201505
